FAERS Safety Report 16927667 (Version 1)
Quarter: 2019Q4

REPORT INFORMATION
  Report Type: Spontaneous
  Country: US (occurrence: US)
  Receive Date: 20191016
  Receipt Date: 20191016
  Transmission Date: 20200122
  Serious: No
  Sender: FDA-Public Use
  Company Number: US-TEVA-2019-US-1122202

PATIENT
  Age: 66 Year
  Sex: Female

DRUGS (1)
  1. METFOERTAB-A ACTAVIS (METFORMIN) [Suspect]
     Active Substance: METFORMIN HYDROCHLORIDE
     Indication: GLUCOSE TOLERANCE IMPAIRED
     Route: 065
     Dates: start: 20191008

REACTIONS (3)
  - Abdominal pain upper [Unknown]
  - Abdominal distension [Unknown]
  - Product substitution issue [Unknown]

NARRATIVE: CASE EVENT DATE: 20191009
